FAERS Safety Report 11368872 (Version 1)
Quarter: 2015Q3

REPORT INFORMATION
  Report Type: Spontaneous
  Country: GB (occurrence: GB)
  Receive Date: 20150812
  Receipt Date: 20150812
  Transmission Date: 20151125
  Serious: Yes (Other)
  Sender: FDA-Public Use
  Company Number: GB-TEVA-584107ACC

PATIENT
  Age: 36 Year
  Sex: Female
  Weight: 41.27 kg

DRUGS (21)
  1. DIAZEPAM. [Concomitant]
     Active Substance: DIAZEPAM
  2. ONDANSETRON [Concomitant]
     Active Substance: ONDANSETRON
  3. ORAMORPH [Concomitant]
     Active Substance: MORPHINE SULFATE
  4. PYRIDOXINE [Concomitant]
     Active Substance: PYRIDOXINE
  5. RAMIPRIL. [Concomitant]
     Active Substance: RAMIPRIL
  6. MULTIVITAMIN [Concomitant]
     Active Substance: VITAMINS
  7. DOMPERIDONE [Concomitant]
     Active Substance: DOMPERIDONE
  8. FORTISIP [Concomitant]
     Active Substance: CARBOHYDRATES\FATTY ACIDS\MINERALS\PROTEIN\VITAMINS
  9. GABAPENTIN. [Concomitant]
     Active Substance: GABAPENTIN
  10. MST CONTINUS [Concomitant]
     Active Substance: MORPHINE SULFATE
  11. SENNA [Concomitant]
     Active Substance: SENNA LEAF\SENNOSIDES\SENNOSIDES A AND B
  12. VITAMIN B COMPLEX STRONG [Concomitant]
  13. GTN [Concomitant]
     Active Substance: NITROGLYCERIN
  14. VITAMIN B12 [Concomitant]
     Active Substance: CYANOCOBALAMIN
  15. VENLAFAXINE [Suspect]
     Active Substance: VENLAFAXINE HYDROCHLORIDE
     Indication: DEPRESSION
     Dosage: 75 MILLIGRAM DAILY; AT NIGHT; DAILY DOSE 75 MILLIGRAM
     Route: 048
     Dates: start: 20150528, end: 20150609
  16. LIPITOR [Concomitant]
     Active Substance: ATORVASTATIN CALCIUM
  17. PARACETAMOL [Concomitant]
     Active Substance: ACETAMINOPHEN
  18. BISOPROLOL [Concomitant]
     Active Substance: BISOPROLOL
  19. CLOPIDOGREL [Concomitant]
     Active Substance: CLOPIDOGREL BISULFATE
  20. DOCUSATE [Concomitant]
     Active Substance: DOCUSATE
  21. CALCIUM GLYCEROPHOSPHATE\CELLULOSE\POLYETHYLENE GLYCOL\SACCHARIN SODIUM\SODIUM HYDROXIDE\SODIUM LAURYL SULFATE\SODIUM MAGNESIUM SILICATE\SODIUM MONOFLUOROPHOSPHATE\SORBITOL\WATER [Concomitant]
     Active Substance: CALCIUM GLYCEROPHOSPHATE\POLYETHYLENE GLYCOLS\POWDERED CELLULOSE\SACCHARIN SODIUM DIHYDRATE\SODIUM HYDROXIDE\SODIUM LAURYL SULFATE\SODIUM MAGNESIUM SILICATE\SODIUM MONOFLUOROPHOSPHATE\SORBITOL\WATER

REACTIONS (3)
  - Poor quality sleep [Unknown]
  - Muscle twitching [Recovered/Resolved]
  - Pain [Recovered/Resolved]

NARRATIVE: CASE EVENT DATE: 20150607
